FAERS Safety Report 4551932-5 (Version None)
Quarter: 2004Q4

REPORT INFORMATION
  Report Type: 
  Country: None (occurrence: None)
  Receive Date: 20041217
  Receipt Date: 20040823
  Transmission Date: 20050328
  Serious: No
  Sender: FDA-Public Use
  Company Number: 2004-BP-07189BP

PATIENT
  Age: 77 Year
  Sex: Female

DRUGS (5)
  1. SPIRIVA [Suspect]
     Indication: CHRONIC OBSTRUCTIVE AIRWAYS DISEASE
     Dosage: 18 MCG (18 MCG, QD), IH
     Route: 055
  2. ALBUTEROL (SERETIDE MITE) [Concomitant]
  3. ADVAIR (SERETIDE MITE) [Concomitant]
  4. VOSPIRE [Concomitant]
  5. SPIRIVA [Suspect]

REACTIONS (2)
  - DYSPNOEA [None]
  - DYSPNOEA EXACERBATED [None]
